FAERS Safety Report 7793463-5 (Version None)
Quarter: 2011Q4

REPORT INFORMATION
  Report Type: 
  Country: None (occurrence: None)
  Receive Date: 20111003
  Receipt Date: 20110929
  Transmission Date: 20120403
  Serious: Yes (Life-Threatening, Hospitalization, Other)
  Sender: FDA-Public Use
  Company Number: PHHY2011GB86219

PATIENT
  Sex: Male

DRUGS (1)
  1. LISINOPRIL [Suspect]
     Dosage: UNK
     Route: 064

REACTIONS (8)
  - RENAL IMPAIRMENT NEONATAL [None]
  - MATERNAL EXPOSURE DURING PREGNANCY [None]
  - OSTEOPENIA [None]
  - SKULL MALFORMATION [None]
  - PERSISTENT FOETAL CIRCULATION [None]
  - RENAL TUBULAR ACIDOSIS [None]
  - SMALL FOR DATES BABY [None]
  - PREMATURE BABY [None]
